FAERS Safety Report 10185112 (Version 1)
Quarter: 2014Q2

REPORT INFORMATION
  Report Type: Spontaneous
  Country: US (occurrence: US)
  Receive Date: 20140521
  Receipt Date: 20140521
  Transmission Date: 20141212
  Serious: Yes (Other)
  Sender: FDA-Public Use
  Company Number: CHPA2014US006681

PATIENT
  Age: 51 Year
  Sex: Female

DRUGS (7)
  1. EXCEDRIN UNKNOWN [Suspect]
  2. EXCEDRIN MIGRAINE [Suspect]
     Indication: MIGRAINE
     Dosage: UNK
     Route: 048
  3. EXCEDRIN TENSION HEADACHE [Suspect]
     Indication: MIGRAINE
     Dosage: 1 DF, EVERY HALF AN HOUR, UP TO MORE THAN 8 DF IN 24 HOURS
     Route: 048
  4. EXCEDRIN TENSION HEADACHE [Suspect]
     Indication: OFF LABEL USE
  5. ACETYLSALICYLIC ACID [Suspect]
  6. BAYER ASPIRIN [Suspect]
     Dosage: UNK
  7. BOTOX [Concomitant]

REACTIONS (4)
  - Migraine [Not Recovered/Not Resolved]
  - Abdominal pain upper [Recovered/Resolved]
  - Incorrect dose administered [Unknown]
  - Therapeutic response changed [Unknown]
